FAERS Safety Report 5085211-7 (Version None)
Quarter: 2006Q3

REPORT INFORMATION
  Report Type: 
  Country: None (occurrence: None)
  Receive Date: 20060822
  Receipt Date: 20060811
  Transmission Date: 20061208
  Serious: Yes (Hospitalization)
  Sender: FDA-Public Use
  Company Number: PHEH2006US10471

PATIENT
  Age: 44 Year
  Sex: Male

DRUGS (4)
  1. HYDROCHLOROTHIAZIDE [Suspect]
     Indication: HYPERTENSION
     Route: 048
     Dates: start: 20060101, end: 20060101
  2. LOTREL [Suspect]
     Indication: HYPERTENSION
     Route: 048
     Dates: start: 20030101, end: 20060101
  3. ENALAPRIL MALEATE [Concomitant]
  4. FELODIPINE [Concomitant]

REACTIONS (5)
  - ACUTE MYOCARDIAL INFARCTION [None]
  - BLOOD PRESSURE INCREASED [None]
  - GOUT [None]
  - HEART RATE INCREASED [None]
  - OEDEMA PERIPHERAL [None]
